FAERS Safety Report 6064730-0 (Version None)
Quarter: 2009Q1

REPORT INFORMATION
  Report Type: 
  Country: None (occurrence: None)
  Receive Date: 20090204
  Receipt Date: 20081104
  Transmission Date: 20090719
  Serious: No
  Sender: FDA-Public Use
  Company Number: A0744440A

PATIENT
  Sex: Female

DRUGS (2)
  1. ARIXTRA [Suspect]
     Indication: DRUG USE FOR UNKNOWN INDICATION
     Dosage: 7.5MG PER DAY
     Route: 058
     Dates: start: 20080802
  2. UNKNOWN [Concomitant]

REACTIONS (2)
  - PRODUCT QUALITY ISSUE [None]
  - THERAPY REGIMEN CHANGED [None]
